FAERS Safety Report 5535644-7 (Version None)
Quarter: 2007Q4

REPORT INFORMATION
  Report Type: 
  Country: None (occurrence: None)
  Receive Date: 20071204
  Receipt Date: 20071204
  Transmission Date: 20080405
  Serious: Yes (Hospitalization)
  Sender: FDA-Public Use
  Company Number: None

PATIENT
  Sex: Male
  Weight: 82 kg

DRUGS (4)
  1. FLUOROURACIL [Suspect]
     Dosage: 2497 MG 350 MG GIVEN IVP ON 11/16/07 2147 MG GIVEN CONTINOUS IV OVER 46 HRS
     Route: 042
     Dates: start: 20071116
  2. LEUCOVORIN CALCIUM [Suspect]
     Dosage: 850 MG
  3. ELOXATIN [Suspect]
     Dosage: 57 MG
  4. LOVENOX [Concomitant]

REACTIONS (2)
  - DYSPHAGIA [None]
  - PULMONARY EMBOLISM [None]
